FAERS Safety Report 7296979-3 (Version None)
Quarter: 2011Q1

REPORT INFORMATION
  Report Type: 
  Country: None (occurrence: None)
  Receive Date: 20110216
  Receipt Date: 20110207
  Transmission Date: 20110831
  Serious: Yes (Other)
  Sender: FDA-Public Use
  Company Number: US-CEPHALON-2011000628

PATIENT
  Sex: Female
  Weight: 98 kg

DRUGS (6)
  1. SYNTHROID [Concomitant]
     Dates: start: 20070101
  2. VENLAFAXINE [Concomitant]
  3. PROVIGIL [Suspect]
     Route: 048
  4. PROVIGIL [Suspect]
     Route: 048
     Dates: start: 20110209
  5. PROVIGIL [Suspect]
     Indication: SLEEP APNOEA SYNDROME
     Route: 048
     Dates: start: 20080601
  6. PROVIGIL [Suspect]
     Route: 048

REACTIONS (8)
  - HEADACHE [None]
  - TINNITUS [None]
  - INSOMNIA [None]
  - FLUSHING [None]
  - FEELING ABNORMAL [None]
  - HEART RATE INCREASED [None]
  - DRUG INEFFECTIVE [None]
  - NASAL CONGESTION [None]
